FAERS Safety Report 9376705 (Version 4)
Quarter: 2014Q1

REPORT INFORMATION
  Report Type: Report from Study
  Country: FR (occurrence: FR)
  Receive Date: 20130701
  Receipt Date: 20140127
  Transmission Date: 20141002
  Serious: Yes (Death, Life-Threatening, Hospitalization, Other)
  Sender: FDA-Public Use
  Company Number: FR-CELGENEUS-056-C4047-12113465

PATIENT
  Age: 41 Year
  Sex: Male
  Weight: 107 kg

DRUGS (17)
  1. CC-4047 [Suspect]
     Indication: PLASMA CELL MYELOMA
     Dosage: 4 MILLIGRAM
     Route: 048
     Dates: start: 20121030, end: 20121124
  2. ASPEGIC [Concomitant]
     Indication: THROMBOSIS PROPHYLAXIS
     Dosage: 100 MILLIGRAM
     Route: 048
     Dates: start: 20121031, end: 20121124
  3. ZOMETA [Concomitant]
     Indication: HYPERCALCAEMIA
     Dosage: 4 MILLIGRAM
     Route: 041
     Dates: end: 20121101
  4. ZOMETA [Concomitant]
     Indication: BONE LESION
  5. ESOMEPRAZOLE [Concomitant]
     Indication: PRODUCT USED FOR UNKNOWN INDICATION
     Dosage: 40 MILLIGRAM
     Route: 048
  6. DEXAMETHASONE [Concomitant]
     Indication: PLASMA CELL MYELOMA
     Dosage: 40 MILLIGRAM
     Route: 048
     Dates: start: 20121101, end: 20121124
  7. DEXAMETHASONE [Concomitant]
     Route: 065
     Dates: start: 20121201
  8. ZOLPIDEM [Concomitant]
     Indication: INSOMNIA
     Route: 048
     Dates: end: 20121124
  9. ASPIRINE [Concomitant]
     Indication: PRODUCT USED FOR UNKNOWN INDICATION
     Route: 065
  10. HEPARIN [Concomitant]
     Indication: THROMBOSIS
     Route: 065
     Dates: start: 20121125, end: 20121127
  11. ACETAMINOPHENE [Concomitant]
     Indication: PRODUCT USED FOR UNKNOWN INDICATION
     Route: 065
     Dates: start: 20121129, end: 20121129
  12. ROCEPHINE [Concomitant]
     Indication: PYREXIA
     Route: 065
     Dates: start: 20121129, end: 20121207
  13. PLASMA [Concomitant]
     Indication: PRODUCT USED FOR UNKNOWN INDICATION
     Route: 041
     Dates: start: 20121124, end: 20121126
  14. VELCADE [Concomitant]
     Indication: PLASMA CELL MYELOMA
     Route: 065
     Dates: start: 20121201
  15. ENDOXAN [Concomitant]
     Indication: PLASMA CELL MYELOMA
     Route: 065
     Dates: start: 20121201
  16. LEVOFLOXACINE [Concomitant]
     Indication: LUNG DISORDER
     Route: 065
  17. CEFTRIAXONE [Concomitant]
     Indication: LUNG DISORDER
     Route: 065

REACTIONS (6)
  - Hepatic failure [Not Recovered/Not Resolved]
  - General physical health deterioration [Not Recovered/Not Resolved]
  - Pneumonia [Recovering/Resolving]
  - Plasma cell myeloma [Fatal]
  - Sinus tachycardia [Not Recovered/Not Resolved]
  - Anaemia [Not Recovered/Not Resolved]
